FAERS Safety Report 10157175 (Version 2)
Quarter: 2014Q2

REPORT INFORMATION
  Report Type: Spontaneous
  Country: US (occurrence: US)
  Receive Date: 20140507
  Receipt Date: 20140606
  Transmission Date: 20141212
  Serious: Yes (Hospitalization, Other)
  Sender: FDA-Public Use
  Company Number: US-B.I. PHARMACEUTICALS,INC./RIDGEFIELD-2014-BI-19821BP

PATIENT
  Age: 80 Year
  Sex: Female
  Weight: 48 kg

DRUGS (14)
  1. PRADAXA [Suspect]
     Indication: DEEP VEIN THROMBOSIS
     Dosage: 300 MG
     Route: 048
     Dates: end: 201301
  2. PRADAXA [Suspect]
     Indication: ATRIAL FIBRILLATION
  3. VITAMIN D [Concomitant]
     Route: 065
  4. ZETIA [Concomitant]
     Route: 065
  5. HYDROCHLOROTHIAZIDE [Concomitant]
     Route: 065
  6. IMDUR EXTENDED-RELEASE [Concomitant]
     Route: 065
  7. LEVOTHYROXINE [Concomitant]
     Route: 065
  8. LOSARTAN [Concomitant]
     Route: 065
  9. METOPROLOL [Concomitant]
     Route: 065
  10. NITROGLYCERIN [Concomitant]
     Route: 065
  11. FISH OIL [Concomitant]
     Route: 065
  12. OMEPRAZOLE [Concomitant]
     Route: 065
  13. ONDANSETRON [Concomitant]
     Route: 065
  14. POTASSIUM [Concomitant]
     Route: 065

REACTIONS (1)
  - Deep vein thrombosis [Recovered/Resolved]
